FAERS Safety Report 10298358 (Version 1)
Quarter: 2014Q3

REPORT INFORMATION
  Report Type: Spontaneous
  Country: DE (occurrence: DE)
  Receive Date: 20140711
  Receipt Date: 20140711
  Transmission Date: 20150326
  Serious: Yes (Other)
  Sender: FDA-Public Use
  Company Number: DE-TEVA-493794GER

PATIENT
  Sex: Male

DRUGS (3)
  1. DOXEPIN-RATIOPHARM 25 MG FILMTABLETTEN [Suspect]
     Active Substance: DOXEPIN
     Dosage: 50 MILLIGRAM DAILY; 0-1-1
     Route: 048
     Dates: start: 201407
  2. LYRICA [Concomitant]
     Active Substance: PREGABALIN
  3. OXYGESIC [Suspect]
     Active Substance: OXYCODONE
     Dosage: 3 X 30 (UNIT AND FORM OF ADMIN. UNSPECIFIED)

REACTIONS (2)
  - Respiratory distress [Not Recovered/Not Resolved]
  - Dyspnoea [Not Recovered/Not Resolved]

NARRATIVE: CASE EVENT DATE: 201407
